FAERS Safety Report 7055900-3 (Version None)
Quarter: 2010Q4

REPORT INFORMATION
  Report Type: 
  Country: None (occurrence: None)
  Receive Date: 20101021
  Receipt Date: 20101014
  Transmission Date: 20110411
  Serious: Yes (Hospitalization)
  Sender: FDA-Public Use
  Company Number: CHPA2010IT16347

PATIENT
  Age: 1 Year
  Sex: Male

DRUGS (1)
  1. TRIAMINIC FLU (NCH) [Suspect]
     Dosage: UNK, UNK

REACTIONS (6)
  - DRUG EXPOSURE VIA BREAST MILK [None]
  - GLYCOSURIA [None]
  - HYPERGLYCAEMIA [None]
  - KETONURIA [None]
  - PALLOR [None]
  - VOMITING [None]
